FAERS Safety Report 8117807-X (Version None)
Quarter: 2012Q1

REPORT INFORMATION
  Report Type: 
  Country: None (occurrence: None)
  Receive Date: 20120202
  Receipt Date: 20120120
  Transmission Date: 20120608
  Serious: Yes (Hospitalization)
  Sender: FDA-Public Use
  Company Number: ALK_02127_2011

PATIENT
  Sex: Male
  Weight: 68.0396 kg

DRUGS (1)
  1. VIVITROL [Suspect]
     Indication: ALCOHOLISM
     Dosage: (380 MG  1/MONTH INTRAMUSCULAR)
     Route: 030
     Dates: start: 20101019, end: 20101111

REACTIONS (15)
  - TRANSIENT GLOBAL AMNESIA [None]
  - HYPERHIDROSIS [None]
  - NO REACTION ON PREVIOUS EXPOSURE TO DRUG [None]
  - EOSINOPHILIC PNEUMONIA [None]
  - NAUSEA [None]
  - CHILLS [None]
  - DIZZINESS [None]
  - VISUAL IMPAIRMENT [None]
  - WHITE BLOOD CELL COUNT INCREASED [None]
  - SHIFT TO THE LEFT [None]
  - REFUSAL OF TREATMENT BY PATIENT [None]
  - CONFUSIONAL STATE [None]
  - MUSCULOSKELETAL STIFFNESS [None]
  - NECK PAIN [None]
  - LYMPHADENOPATHY MEDIASTINAL [None]
